FAERS Safety Report 22281135 (Version 1)
Quarter: 2023Q2

REPORT INFORMATION
  Report Type: Spontaneous
  Country: US (occurrence: US)
  Receive Date: 20230504
  Receipt Date: 20230504
  Transmission Date: 20230721
  Serious: Yes (Hospitalization, Other)
  Sender: FDA-Public Use
  Company Number: US-SA-2023SA135278

PATIENT
  Age: 50 Year
  Sex: Male

DRUGS (1)
  1. DUPILUMAB [Suspect]
     Active Substance: DUPILUMAB
     Indication: Dermatitis atopic
     Dosage: UNK

REACTIONS (15)
  - Cutaneous T-cell lymphoma [Recovering/Resolving]
  - Lymphocytic infiltration [Recovering/Resolving]
  - Oral mucosa erosion [Recovering/Resolving]
  - Odynophagia [Recovering/Resolving]
  - Blister [Recovering/Resolving]
  - Skin lesion [Recovering/Resolving]
  - Dermatitis [Recovering/Resolving]
  - Dermatitis bullous [Recovering/Resolving]
  - Skin plaque [Recovering/Resolving]
  - Erythema [Recovering/Resolving]
  - Skin erosion [Recovering/Resolving]
  - Nasal mucosal erosion [Recovering/Resolving]
  - Pharyngeal erosion [Recovering/Resolving]
  - Pyrexia [Recovering/Resolving]
  - Infection [Unknown]
